FAERS Safety Report 25600949 (Version 1)
Quarter: 2025Q3

REPORT INFORMATION
  Report Type: Spontaneous
  Country: EU (occurrence: EU)
  Receive Date: 20250724
  Receipt Date: 20250724
  Transmission Date: 20251020
  Serious: Yes (Death)
  Sender: CHEPLAPHARM
  Company Number: None

PATIENT
  Age: 78 Year
  Sex: Female

DRUGS (4)
  1. OLANZAPINE [Suspect]
     Active Substance: OLANZAPINE
     Indication: Schizophrenia
     Route: 048
     Dates: start: 202501
  2. LOXAPINE [Suspect]
     Active Substance: LOXAPINE
     Indication: Schizophrenia
     Route: 048
     Dates: start: 202501
  3. Nicardipine LP [Concomitant]
  4. PANTOPRAZOLE [Concomitant]
     Active Substance: PANTOPRAZOLE
     Dosage: 0-0-1?DAILY DOSE: 20 MILLIGRAM

REACTIONS (5)
  - Faecaloma [Fatal]
  - Dehydration [Fatal]
  - General physical health deterioration [Unknown]
  - Lower respiratory tract congestion [Unknown]
  - Hyperthermia [Unknown]

NARRATIVE: CASE EVENT DATE: 20250701
